FAERS Safety Report 23060885 (Version 2)
Quarter: 2023Q4

REPORT INFORMATION
  Report Type: Spontaneous
  Country: US (occurrence: US)
  Receive Date: 20231012
  Receipt Date: 20231106
  Transmission Date: 20240110
  Serious: Yes (Life-Threatening, Hospitalization, Disabling, Other)
  Sender: FDA-Public Use
  Company Number: US-BRISTOL-MYERS SQUIBB COMPANY-2023-145310

PATIENT
  Age: 44 Year
  Sex: Male
  Weight: 88.4 kg

DRUGS (6)
  1. NIVOLUMAB [Suspect]
     Active Substance: NIVOLUMAB
     Indication: Malignant melanoma
     Route: 042
     Dates: start: 20230817, end: 20230817
  2. NIVOLUMAB [Suspect]
     Active Substance: NIVOLUMAB
     Route: 042
     Dates: start: 20230913, end: 20230913
  3. IPILIMUMAB [Suspect]
     Active Substance: IPILIMUMAB
     Indication: Malignant melanoma
     Route: 042
     Dates: start: 20230817, end: 20230817
  4. IPILIMUMAB [Suspect]
     Active Substance: IPILIMUMAB
     Route: 042
     Dates: start: 20230913, end: 20230913
  5. ULIXERTINIB [Suspect]
     Active Substance: ULIXERTINIB
     Indication: Malignant melanoma
     Route: 048
     Dates: start: 20230922, end: 20230930
  6. ULIXERTINIB [Suspect]
     Active Substance: ULIXERTINIB
     Route: 048
     Dates: start: 20231003

REACTIONS (5)
  - Hypophysitis [Recovering/Resolving]
  - Asthenia [Recovering/Resolving]
  - Addison^s disease [Unknown]
  - Prescribed overdose [Unknown]
  - Malignant neoplasm progression [Unknown]

NARRATIVE: CASE EVENT DATE: 20230926
